FAERS Safety Report 15178294 (Version 4)
Quarter: 2020Q1

REPORT INFORMATION
  Report Type: Spontaneous
  Country: NL (occurrence: NL)
  Receive Date: 20180721
  Receipt Date: 20200122
  Transmission Date: 20200409
  Serious: Yes (Death, Hospitalization, Other)
  Sender: FDA-Public Use
  Company Number: NL-AUROBINDO-AUR-APL-2018-008993

PATIENT

DRUGS (15)
  1. BEVACIZUMAB. [Suspect]
     Active Substance: BEVACIZUMAB
     Indication: COLORECTAL CANCER
     Dosage: UNK
     Route: 065
     Dates: start: 20150730, end: 20150813
  2. BEVACIZUMAB. [Suspect]
     Active Substance: BEVACIZUMAB
     Dosage: 5 MILLIGRAM/KILOGRAM, 2 WEEKS (DATE OF LAST DOSE : 17/MAY/2018)
     Route: 042
     Dates: start: 20180517
  3. IRINOTECAN [Suspect]
     Active Substance: IRINOTECAN
     Dosage: DATE OF LAST DOSE ON 03/MAY/2018 ()
     Route: 065
     Dates: start: 20180503
  4. IRINOTECAN [Suspect]
     Active Substance: IRINOTECAN
     Dosage: 165 MILLIGRAM/SQ. METER, 2 WEEKS (DATE OF LAST DOSE : 17/MAY/2018)
     Route: 042
     Dates: start: 20180517
  5. 5-FU [Suspect]
     Active Substance: FLUOROURACIL
     Dosage: DATE OF LAST DOSE ON 03/MAY/2018
     Route: 065
     Dates: start: 20180503
  6. IRINOTECAN [Suspect]
     Active Substance: IRINOTECAN
     Indication: COLORECTAL CANCER
     Dosage: UNK
     Route: 065
     Dates: start: 20150730, end: 20150813
  7. OXALIPLATIN. [Suspect]
     Active Substance: OXALIPLATIN
     Dosage: DATE OF LAST DOSE ON 03/MAY/2018
     Route: 065
     Dates: start: 20180503
  8. LEUCOVORIN. [Suspect]
     Active Substance: LEUCOVORIN
     Dosage: 400 MILLIGRAM/SQ. METER, 2 WEEKS (DATE OF LAST DOSE : 17/MAY/2018)
     Route: 042
     Dates: start: 20180517
  9. OXALIPLATIN. [Suspect]
     Active Substance: OXALIPLATIN
     Dosage: 85 MILLIGRAM/SQ. METER, 2 WEEKS (DATE OF LAST DOSE : 17/MAY/2018)
     Route: 042
     Dates: start: 20180517
  10. BEVACIZUMAB. [Suspect]
     Active Substance: BEVACIZUMAB
     Dosage: DATE OF LAST DOSE ON 03/MAY/2018
     Route: 042
     Dates: start: 20180503
  11. LEUCOVORIN. [Suspect]
     Active Substance: LEUCOVORIN
     Indication: COLORECTAL CANCER
     Dosage: UNK
     Route: 065
     Dates: start: 20150730, end: 20150813
  12. 5-FU [Suspect]
     Active Substance: FLUOROURACIL
     Indication: COLORECTAL CANCER
     Dosage: UNK
     Route: 065
     Dates: start: 20150730, end: 20150815
  13. LEUCOVORIN. [Suspect]
     Active Substance: LEUCOVORIN
     Dosage: DATE OF LAST DOSE ON 03/MAY/2018
     Route: 065
     Dates: start: 20180503
  14. 5-FU [Suspect]
     Active Substance: FLUOROURACIL
     Dosage: 3200 MILLIGRAM/SQ. METER, 2 WEEKS (DATE OF LAST DOSE : 18/MAY/2018)
     Route: 042
     Dates: start: 20180517
  15. OXALIPLATIN. [Suspect]
     Active Substance: OXALIPLATIN
     Indication: COLORECTAL CANCER
     Dosage: UNK
     Route: 065
     Dates: start: 20150730, end: 20150813

REACTIONS (6)
  - Abdominal pain [Recovering/Resolving]
  - Ileus [Recovered/Resolved]
  - Large intestinal obstruction [Recovered/Resolved with Sequelae]
  - Sepsis [Fatal]
  - Anaemia [Recovered/Resolved]
  - Diarrhoea [Recovered/Resolved]

NARRATIVE: CASE EVENT DATE: 20150820
